FAERS Safety Report 21800880 (Version 1)
Quarter: 2022Q4

REPORT INFORMATION
  Report Type: Report from Study
  Country: CN (occurrence: CN)
  Receive Date: 20221230
  Receipt Date: 20221230
  Transmission Date: 20230113
  Serious: Yes (Hospitalization, Other)
  Sender: FDA-Public Use
  Company Number: CN-TAKEDA-2022TUS102943

PATIENT
  Age: 62 Year
  Sex: Male
  Weight: 58 kg

DRUGS (10)
  1. VEDOLIZUMAB [Suspect]
     Active Substance: VEDOLIZUMAB
     Indication: Colitis ulcerative
     Dosage: 300 MILLIGRAM
     Route: 042
     Dates: start: 20220706
  2. DIMETHICONE [Concomitant]
     Active Substance: DIMETHICONE
     Indication: Endoscopy upper gastrointestinal tract
     Dosage: 2 MILLILITER
     Route: 048
     Dates: start: 20221222, end: 20221222
  3. DYCLONINE HYDROCHLORIDE [Concomitant]
     Active Substance: DYCLONINE HYDROCHLORIDE
     Indication: Endoscopy upper gastrointestinal tract
     Dosage: 0.1 GRAM
     Route: 048
     Dates: start: 20221222, end: 20221222
  4. POTASSIUM CHLORIDE [Concomitant]
     Active Substance: POTASSIUM CHLORIDE
     Indication: Dehydration
     Dosage: 30 MILLILITER, QD
     Route: 042
     Dates: start: 20221223, end: 20221223
  5. POTASSIUM CHLORIDE [Concomitant]
     Active Substance: POTASSIUM CHLORIDE
     Dosage: 7.5 MILLILITER, QD
     Route: 042
     Dates: start: 20221224, end: 20221224
  6. POTASSIUM CHLORIDE [Concomitant]
     Active Substance: POTASSIUM CHLORIDE
     Dosage: 10 MILLILITER, QD
     Route: 042
     Dates: start: 20221224, end: 20221226
  7. DEXTROSE\SODIUM CHLORIDE [Concomitant]
     Active Substance: DEXTROSE\SODIUM CHLORIDE
     Indication: Dehydration
     Dosage: 500 MILLILITER, QD
     Route: 042
     Dates: start: 20221222, end: 20221226
  8. VITAMIN C [Concomitant]
     Active Substance: ASCORBIC ACID
     Indication: Dehydration
     Dosage: 1 GRAM, QD
     Route: 042
     Dates: start: 20221224, end: 20221224
  9. VITAMIN B6 [Concomitant]
     Active Substance: PYRIDOXINE HYDROCHLORIDE
     Indication: Dehydration
     Dosage: 100 MILLIGRAM, QD
     Route: 042
     Dates: start: 20221224, end: 20221224
  10. Compound amino acid injection (14aa) [Concomitant]
     Indication: Nutritional supplementation
     Dosage: 250 MILLILITER, QD
     Route: 042
     Dates: start: 20221224, end: 20221227

REACTIONS (2)
  - Duodenal ulcer haemorrhage [Recovered/Resolved]
  - Dysbiosis [Not Recovered/Not Resolved]

NARRATIVE: CASE EVENT DATE: 20221222
